FAERS Safety Report 10068393 (Version 2)
Quarter: 2014Q2

REPORT INFORMATION
  Report Type: Spontaneous
  Country: US (occurrence: US)
  Receive Date: 20140409
  Receipt Date: 20140506
  Transmission Date: 20141212
  Serious: Yes (Other)
  Sender: FDA-Public Use
  Company Number: US-TEVA-474443USA

PATIENT
  Age: 38 Year
  Sex: Female
  Weight: 150.27 kg

DRUGS (2)
  1. PARAGARD 380A [Suspect]
     Indication: CONTRACEPTION
     Route: 015
     Dates: start: 20140307, end: 20140407
  2. ZOLOFT [Concomitant]
     Indication: ANXIETY
     Dosage: 50 MILLIGRAM DAILY;
     Route: 048

REACTIONS (1)
  - Device dislocation [Recovered/Resolved]
